FAERS Safety Report 18839294 (Version 1)
Quarter: 2021Q1

REPORT INFORMATION
  Report Type: Report from Study
  Country: US (occurrence: US)
  Receive Date: 20210203
  Receipt Date: 20210203
  Transmission Date: 20210419
  Serious: No
  Sender: FDA-Public Use
  Company Number: US-EXELIXIS-CABO-20034405

PATIENT
  Age: 63 Year
  Sex: Female

DRUGS (1)
  1. COMETRIQ [Suspect]
     Active Substance: CABOZANTINIB S-MALATE
     Indication: THYROID CANCER
     Dosage: 80 MG, QD (14 DAYS ON FOLLOWED BY 7 DAYS OFF)
     Route: 048
     Dates: start: 20191209

REACTIONS (4)
  - Inappropriate schedule of product administration [Unknown]
  - Onychomadesis [Unknown]
  - Stomatitis [Unknown]
  - Nail discolouration [Unknown]

NARRATIVE: CASE EVENT DATE: 20191209
